FAERS Safety Report 15321185 (Version 2)
Quarter: 2018Q4

REPORT INFORMATION
  Report Type: Spontaneous
  Country: US (occurrence: US)
  Receive Date: 20180827
  Receipt Date: 20181018
  Transmission Date: 20190204
  Serious: No
  Sender: FDA-Public Use
  Company Number: US-SA-2018SA237924

PATIENT

DRUGS (1)
  1. XYZAL ALLERGY 24HR [Suspect]
     Active Substance: LEVOCETIRIZINE DIHYDROCHLORIDE
     Indication: HYPERSENSITIVITY
     Dosage: UNK UNK, UNK
     Route: 065

REACTIONS (4)
  - Extra dose administered [Unknown]
  - Swelling [Unknown]
  - Depression [Unknown]
  - Hypersensitivity [Unknown]
